FAERS Safety Report 25968391 (Version 1)
Quarter: 2025Q4

REPORT INFORMATION
  Report Type: Spontaneous
  Country: GB (occurrence: GB)
  Receive Date: 20251028
  Receipt Date: 20251028
  Transmission Date: 20260118
  Serious: Yes (Disabling, Other)
  Sender: RANBAXY
  Company Number: GB-SUN PHARMACEUTICAL INDUSTRIES LTD-2025RR-533455

PATIENT
  Sex: Male

DRUGS (2)
  1. PREGABALIN [Suspect]
     Active Substance: PREGABALIN
     Indication: Gout
     Dosage: 50MG 3 TIMES DAILY AS PRESCRIBED
     Route: 065
     Dates: start: 2025
  2. PREGABALIN [Suspect]
     Active Substance: PREGABALIN
     Indication: Gout
     Dosage: 3 TIMES A DAY
     Route: 065

REACTIONS (2)
  - Medication error [Unknown]
  - Dyspnoea [Not Recovered/Not Resolved]

NARRATIVE: CASE EVENT DATE: 20250801
